FAERS Safety Report 13609249 (Version 2)
Quarter: 2017Q2

REPORT INFORMATION
  Report Type: Spontaneous
  Country: FR (occurrence: FR)
  Receive Date: 20170602
  Receipt Date: 20170609
  Transmission Date: 20170830
  Serious: Yes (Hospitalization, Other)
  Sender: FDA-Public Use
  Company Number: FR-PFIZER INC-2869068

PATIENT
  Age: 44 Year
  Sex: Female

DRUGS (4)
  1. DOCETAXEL. [Suspect]
     Active Substance: DOCETAXEL
     Indication: BREAST CANCER METASTATIC
     Dosage: 100 MG/M2, UNK
     Route: 042
     Dates: start: 20150410, end: 20150410
  2. TRAMADOL. [Concomitant]
     Active Substance: TRAMADOL
     Indication: PAIN
     Dosage: UNK
  3. ATARAX [Concomitant]
     Active Substance: HYDROXYZINE HYDROCHLORIDE
     Dosage: 35 MG/DAY
  4. GRANOCYTE [Suspect]
     Active Substance: LENOGRASTIM
     Dosage: UNK
     Dates: start: 20150424, end: 20150426

REACTIONS (11)
  - Hypotension [Unknown]
  - Pyrexia [Recovered/Resolved]
  - Colitis [Recovered/Resolved]
  - Asthenia [Recovering/Resolving]
  - Feeling cold [Unknown]
  - Sepsis [Unknown]
  - Pyelonephritis [Unknown]
  - Neutropenia [Unknown]
  - Nausea [Unknown]
  - Vomiting [Unknown]
  - Diarrhoea [Recovered/Resolved]

NARRATIVE: CASE EVENT DATE: 2015
